FAERS Safety Report 10009582 (Version 2)
Quarter: 2014Q1

REPORT INFORMATION
  Report Type: Spontaneous
  Country: US (occurrence: US)
  Receive Date: 20140312
  Receipt Date: 20140312
  Transmission Date: 20141002
  Serious: Yes (Other)
  Sender: FDA-Public Use
  Company Number: US-INCYTE CORPORATION-2012IN001624

PATIENT
  Age: 80 Year
  Sex: Female
  Weight: 63.49 kg

DRUGS (4)
  1. JAKAFI [Suspect]
     Indication: POLYCYTHAEMIA VERA
     Dosage: 20 MG, BID
     Route: 048
     Dates: start: 20120709, end: 20120805
  2. JAKAFI [Suspect]
     Dosage: 10 MG, BID
     Route: 048
     Dates: start: 20120806, end: 20120820
  3. PLAVIX [Concomitant]
     Dosage: 75 MG, QD
  4. ALDACTAZIDE [Concomitant]

REACTIONS (3)
  - Anaemia [Not Recovered/Not Resolved]
  - Drug effect increased [Not Recovered/Not Resolved]
  - White blood cell count decreased [Recovered/Resolved]
